FAERS Safety Report 12725254 (Version 3)
Quarter: 2016Q3

REPORT INFORMATION
  Report Type: Spontaneous
  Country: IT (occurrence: IT)
  Receive Date: 20160908
  Receipt Date: 20160921
  Transmission Date: 20161109
  Serious: Yes (Other)
  Sender: FDA-Public Use
  Company Number: IT-PFIZER INC-2016419622

PATIENT
  Age: 48 Year
  Sex: Female

DRUGS (3)
  1. ZOLPIDEM TARTRATE. [Suspect]
     Active Substance: ZOLPIDEM TARTRATE
     Dosage: 2400 MG, TOTAL
     Route: 048
     Dates: start: 20160714, end: 20160714
  2. METFORMIN [Concomitant]
     Active Substance: METFORMIN HYDROCHLORIDE
     Indication: DIABETES MELLITUS
     Dosage: UNK
     Route: 048
  3. XANAX [Suspect]
     Active Substance: ALPRAZOLAM
     Dosage: 30 MG, TOTAL
     Route: 048
     Dates: start: 20160714, end: 20160714

REACTIONS (5)
  - Intentional self-injury [Recovered/Resolved]
  - Drop attacks [Recovered/Resolved]
  - Disorganised speech [Recovered/Resolved]
  - Drug abuse [Recovered/Resolved]
  - Fall [Recovered/Resolved]

NARRATIVE: CASE EVENT DATE: 20160714
